FAERS Safety Report 8212304-5 (Version None)
Quarter: 2012Q1

REPORT INFORMATION
  Report Type: 
  Country: None (occurrence: None)
  Receive Date: 20120315
  Receipt Date: 20120308
  Transmission Date: 20120608
  Serious: Yes (Hospitalization)
  Sender: FDA-Public Use
  Company Number: US-ACTELION-A-US2012-59815

PATIENT

DRUGS (3)
  1. TRACLEER [Suspect]
     Indication: PULMONARY ARTERIAL HYPERTENSION
     Dosage: UNK
     Route: 048
     Dates: start: 20111010
  2. COUMADIN [Concomitant]
  3. REVATIO [Concomitant]

REACTIONS (6)
  - CLOSTRIDIAL INFECTION [None]
  - ABDOMINAL DISTENSION [None]
  - DIARRHOEA [None]
  - INFLUENZA [None]
  - BLOOD ALBUMIN DECREASED [None]
  - SURGERY [None]
